FAERS Safety Report 8251942-0 (Version None)
Quarter: 2012Q2

REPORT INFORMATION
  Report Type: 
  Country: None (occurrence: None)
  Receive Date: 20120402
  Receipt Date: 20120329
  Transmission Date: 20120825
  Serious: Yes (Other)
  Sender: FDA-Public Use
  Company Number: US-PFIZER INC-2012045824

PATIENT
  Sex: Female
  Weight: 61.678 kg

DRUGS (4)
  1. NORGESTREL [Suspect]
     Indication: CONTRACEPTION
     Dosage: UNK
  2. LO/OVRAL-28 [Suspect]
     Indication: CONTRACEPTION
     Dosage: UNK
  3. ETHINYL ESTRADIOL W/NORGESTREL [Suspect]
     Indication: CONTRACEPTION
     Dosage: UNK, DAILY
     Dates: start: 20091201
  4. ETHINYL ESTRADIOL W/NORGESTREL [Suspect]
     Indication: DYSMENORRHOEA

REACTIONS (3)
  - DRUG INEFFECTIVE [None]
  - UNINTENDED PREGNANCY [None]
  - PRODUCT QUALITY ISSUE [None]
